FAERS Safety Report 20201029 (Version 1)
Quarter: 2021Q4

REPORT INFORMATION
  Report Type: Report from Study
  Country: CN (occurrence: CN)
  Receive Date: 20211217
  Receipt Date: 20211217
  Transmission Date: 20220304
  Serious: Yes (Hospitalization, Other)
  Sender: FDA-Public Use
  Company Number: CN-JNJFOC-20210908543

PATIENT

DRUGS (4)
  1. REMICADE [Suspect]
     Active Substance: INFLIXIMAB
     Indication: Crohn^s disease
     Route: 042
     Dates: start: 200701, end: 201712
  2. AZATHIOPRINE [Concomitant]
     Active Substance: AZATHIOPRINE
  3. METHOTREXATE [Concomitant]
     Active Substance: METHOTREXATE
  4. THALIDOMIDE [Concomitant]
     Active Substance: THALIDOMIDE

REACTIONS (12)
  - Pneumonia [Recovering/Resolving]
  - Sepsis [Unknown]
  - Postoperative wound infection [Unknown]
  - Colostomy infection [Unknown]
  - Cytomegalovirus infection [Unknown]
  - Amoebic dysentery [Unknown]
  - Pulmonary tuberculosis [Unknown]
  - Gastrointestinal infection [Recovering/Resolving]
  - Respiratory tract infection [Recovering/Resolving]
  - Infusion related reaction [Unknown]
  - Infection [Recovering/Resolving]
  - Therapeutic product effect decreased [Unknown]
